FAERS Safety Report 25613677 (Version 5)
Quarter: 2025Q4

REPORT INFORMATION
  Report Type: Spontaneous
  Country: EU (occurrence: EU)
  Receive Date: 20250728
  Receipt Date: 20251119
  Transmission Date: 20260118
  Serious: Yes (Hospitalization, Other)
  Sender: MYLAN
  Company Number: EU-TEVA-VS-3349334

PATIENT
  Age: 58 Year
  Sex: Male

DRUGS (6)
  1. BUDESONIDE [Suspect]
     Active Substance: BUDESONIDE
     Indication: Crohn^s disease
     Dosage: UNK
  2. AZATHIOPRINE [Suspect]
     Active Substance: AZATHIOPRINE
     Indication: Pericarditis
     Dosage: UNK
  3. MESALAMINE [Suspect]
     Active Substance: MESALAMINE
     Indication: Crohn^s disease
     Dosage: UNK
  4. IBUPROFEN [Concomitant]
     Active Substance: IBUPROFEN
     Indication: Crohn^s disease
     Dosage: 600 MILLIGRAM, Q8H
  5. COLCHICINE [Concomitant]
     Active Substance: COLCHICINE
     Indication: Crohn^s disease
     Dosage: 1 MILLIGRAM, QD
  6. PREDNISOLONE [Concomitant]
     Active Substance: PREDNISOLONE
     Indication: Crohn^s disease
     Dosage: 0.5 MILLIGRAM/KILOGRAM, QD

REACTIONS (5)
  - Pericarditis [Recovering/Resolving]
  - Neutropenia [Unknown]
  - Rebound effect [Unknown]
  - Off label use [Unknown]
  - Product use in unapproved indication [Unknown]
